FAERS Safety Report 20078276 (Version 1)
Quarter: 2021Q4

REPORT INFORMATION
  Report Type: Spontaneous
  Country: CH (occurrence: CH)
  Receive Date: 20211117
  Receipt Date: 20211117
  Transmission Date: 20220303
  Serious: Yes (Other)
  Sender: FDA-Public Use
  Company Number: CH-ABBVIE-21K-151-4164384-00

PATIENT
  Sex: Male

DRUGS (5)
  1. VALPROATE SODIUM [Suspect]
     Active Substance: VALPROATE SODIUM
     Indication: Maternal exposure timing unspecified
     Route: 064
  2. BIPERIDEN [Suspect]
     Active Substance: BIPERIDEN
     Indication: Maternal exposure timing unspecified
     Route: 064
  3. OLANZAPINE [Suspect]
     Active Substance: OLANZAPINE
     Indication: Maternal exposure timing unspecified
     Route: 064
  4. RISPERIDONE [Suspect]
     Active Substance: RISPERIDONE
     Indication: Maternal exposure timing unspecified
     Route: 064
  5. HALDOL [Suspect]
     Active Substance: HALOPERIDOL
     Indication: Maternal exposure timing unspecified
     Route: 064

REACTIONS (5)
  - Liver disorder [Not Recovered/Not Resolved]
  - Eye disorder [Not Recovered/Not Resolved]
  - Mental disability [Not Recovered/Not Resolved]
  - Cognitive disorder [Not Recovered/Not Resolved]
  - Foetal exposure during pregnancy [Unknown]

NARRATIVE: CASE EVENT DATE: 19960101
